FAERS Safety Report 8404135-8 (Version None)
Quarter: 2012Q2

REPORT INFORMATION
  Report Type: 
  Country: None (occurrence: None)
  Receive Date: 20120601
  Receipt Date: 20120529
  Transmission Date: 20120825
  Serious: Yes (Other)
  Sender: FDA-Public Use
  Company Number: US-ROCHE-1073611

PATIENT
  Sex: Female
  Weight: 79.45 kg

DRUGS (5)
  1. OMALIZUMAB [Suspect]
     Indication: ASTHMA
     Route: 058
     Dates: start: 20010301
  2. ADVAIR DISKUS 100/50 [Concomitant]
  3. SINGULAIR [Concomitant]
  4. CLARITIN [Concomitant]
  5. DUONEB [Concomitant]

REACTIONS (1)
  - HERPES ZOSTER [None]
